FAERS Safety Report 4534738-2 (Version None)
Quarter: 2004Q4

REPORT INFORMATION
  Report Type: 
  Country: None (occurrence: None)
  Receive Date: 20041222
  Receipt Date: 20031231
  Transmission Date: 20050328
  Serious: No
  Sender: FDA-Public Use
  Company Number: US-BRISTOL-MYERS SQUIBB COMPANY-12467429

PATIENT
  Sex: Male

DRUGS (1)
  1. PRAVACHOL [Suspect]
     Dosage: STARTED ON 20MG/DAY THEN 40MG/DAY THEN 80MG/DAY 6 MONTHS AGO

REACTIONS (2)
  - CONFUSIONAL STATE [None]
  - MEMORY IMPAIRMENT [None]
